FAERS Safety Report 16374042 (Version 2)
Quarter: 2019Q2

REPORT INFORMATION
  Report Type: Spontaneous
  Country: BR (occurrence: BR)
  Receive Date: 20190530
  Receipt Date: 20190603
  Transmission Date: 20190711
  Serious: Yes (Other)
  Sender: FDA-Public Use
  Company Number: BR-BAUSCH-BL-2019-015486

PATIENT
  Age: 43 Year
  Sex: Male
  Weight: 130 kg

DRUGS (3)
  1. CICLOPIROX OLAMINE. [Suspect]
     Active Substance: CICLOPIROX OLAMINE
     Indication: FUNGAL INFECTION
     Dosage: TOPICAL SOLUTION/10 MG/ML/VIAL WITH 15 ML, 3 DROPS TWICE A DAY IN EACH EAR FOR 7 DAYS
     Route: 065
     Dates: start: 20190508, end: 20190510
  2. ARADOIS [Concomitant]
     Active Substance: LOSARTAN POTASSIUM
     Indication: BLOOD PRESSURE ABNORMAL
     Dosage: 8 MONTHS AGO
     Dates: start: 2018
  3. HYDROCHLOROTHIAZIDE. [Concomitant]
     Active Substance: HYDROCHLOROTHIAZIDE
     Indication: PRODUCT USED FOR UNKNOWN INDICATION

REACTIONS (8)
  - Ear pain [Not Recovered/Not Resolved]
  - Facial paresis [Not Recovered/Not Resolved]
  - Product use issue [Unknown]
  - Ear infection [Not Recovered/Not Resolved]
  - Fear [Not Recovered/Not Resolved]
  - Facial paralysis [Not Recovered/Not Resolved]
  - Pain [Not Recovered/Not Resolved]
  - Blood pressure increased [Not Recovered/Not Resolved]

NARRATIVE: CASE EVENT DATE: 201905
